FAERS Safety Report 24584723 (Version 1)
Quarter: 2024Q4

REPORT INFORMATION
  Report Type: Report from Study
  Country: CA (occurrence: CA)
  Receive Date: 20241106
  Receipt Date: 20241106
  Transmission Date: 20250115
  Serious: Yes (Other)
  Sender: JOHNSON AND JOHNSON
  Company Number: CA-JNJFOC-20241071251

PATIENT
  Age: 38 Year
  Sex: Female

DRUGS (1)
  1. REMICADE [Suspect]
     Active Substance: INFLIXIMAB
     Indication: Crohn^s disease
     Dosage: STRENGTH: 10 MG/KG
     Route: 041
     Dates: start: 20221016, end: 20241010

REACTIONS (5)
  - Crohn^s disease [Unknown]
  - Arthralgia [Unknown]
  - Histone antibody positive [Unknown]
  - Psoriasis [Not Recovered/Not Resolved]
  - Antinuclear antibody positive [Unknown]

NARRATIVE: CASE EVENT DATE: 20240101
